FAERS Safety Report 18993848 (Version 1)
Quarter: 2021Q1

REPORT INFORMATION
  Report Type: Spontaneous
  Country: MX (occurrence: MX)
  Receive Date: 20210310
  Receipt Date: 20210310
  Transmission Date: 20210420
  Serious: Yes (Life-Threatening)
  Sender: FDA-Public Use
  Company Number: MX-PFIZER INC-2021239582

PATIENT
  Sex: Female

DRUGS (8)
  1. OXYGEN. [Suspect]
     Active Substance: OXYGEN
     Dosage: UNK(8 L/MIN) VIA A NASAL CANNULA
     Route: 064
     Dates: start: 202006
  2. CEFTAROLINE FOSAMIL [Suspect]
     Active Substance: CEFTAROLINE FOSAMIL
     Dosage: 600 MG
     Route: 064
     Dates: start: 202006
  3. LOPINAVIR + RITONAVIR [Suspect]
     Active Substance: LOPINAVIR\RITONAVIR
     Dosage: UNK, 2X/DAY(200 MG/50 MG) C/12 HRS
     Route: 064
     Dates: start: 202006
  4. EPHEDRINE. [Suspect]
     Active Substance: EPHEDRINE
     Dosage: UNK
     Route: 064
     Dates: start: 2020
  5. ENOXAPARIN [Suspect]
     Active Substance: ENOXAPARIN
     Dosage: 60 MG
     Route: 064
     Dates: start: 202006, end: 2020
  6. AZITHROMYCIN ANHYDROUS. [Suspect]
     Active Substance: AZITHROMYCIN ANHYDROUS
     Dosage: 250 MG
     Route: 064
     Dates: start: 202006, end: 2020
  7. METHYLPREDNISOLONE SODIUM SUCCINATE. [Suspect]
     Active Substance: METHYLPREDNISOLONE SODIUM SUCCINATE
     Dosage: 40 MG
     Route: 064
     Dates: start: 202006, end: 2020
  8. LOPINAVIR + RITONAVIR [Suspect]
     Active Substance: LOPINAVIR\RITONAVIR
     Dosage: UNK(400 MG/100 MG)
     Route: 064
     Dates: start: 202006, end: 2020

REACTIONS (2)
  - Maternal exposure during pregnancy [Unknown]
  - Growth retardation [Unknown]

NARRATIVE: CASE EVENT DATE: 2020
